FAERS Safety Report 13694799 (Version 1)
Quarter: 2017Q2

REPORT INFORMATION
  Report Type: Spontaneous
  Country: FR (occurrence: FR)
  Receive Date: 20170627
  Receipt Date: 20170627
  Transmission Date: 20170830
  Serious: Yes (Other)
  Sender: FDA-Public Use
  Company Number: FR-INCYTE CORPORATION-2017IN004948

PATIENT

DRUGS (8)
  1. VALACICLOVIR [Suspect]
     Active Substance: VALACYCLOVIR HYDROCHLORIDE
     Indication: BONE GRAFT
     Dosage: 500 MG, BID
     Route: 048
     Dates: start: 2013
  2. INEXIUM [Suspect]
     Active Substance: ESOMEPRAZOLE
     Indication: BONE GRAFT
     Dosage: 1 DF, QD
     Route: 048
     Dates: start: 2013
  3. BACTRIM [Suspect]
     Active Substance: SULFAMETHOXAZOLE\TRIMETHOPRIM
     Indication: BONE GRAFT
     Dosage: 3 DF IN 3 DAYS
     Route: 048
     Dates: start: 2013
  4. ZITHROMAX [Suspect]
     Active Substance: AZITHROMYCIN DIHYDRATE
     Indication: BONE GRAFT
     Dosage: OVER 2 DAYS
     Route: 048
  5. JAKAVI [Suspect]
     Active Substance: RUXOLITINIB
     Indication: BONE GRAFT
     Dosage: 15 MG, BID
     Route: 048
     Dates: start: 2013
  6. CORTANCYL [Suspect]
     Active Substance: PREDNISONE
     Indication: BONE GRAFT
     Dosage: UNKNOWN
     Route: 048
     Dates: start: 2013
  7. OROCAL D3 [Suspect]
     Active Substance: CALCIUM CARBONATE\CHOLECALCIFEROL
     Indication: BONE GRAFT
     Dosage: 1 DF, QD
     Route: 048
     Dates: start: 2013
  8. DELURSAN [Suspect]
     Active Substance: URSODIOL
     Indication: BONE GRAFT
     Dosage: 1 DF, UNK (3 DF IN 3 DAYS)
     Route: 048
     Dates: start: 2013

REACTIONS (2)
  - Respiratory failure [Unknown]
  - Muscle spasms [Not Recovered/Not Resolved]

NARRATIVE: CASE EVENT DATE: 201505
